FAERS Safety Report 6165378 (Version 4)
Quarter: 2012Q4

REPORT INFORMATION
  Report Type: 
  Country: DK (occurrence: DK)
  Receive Date: 20061110
  Receipt Date: 20121230
  Transmission Date: 20130627
  Serious: Yes (Death, Hospitalization, Disabling, Other)
  Sender: FDA-Public Use
  Company Number: PHBS2006DK16997

PATIENT
  Age: 55 Year
  Sex: Female
  Weight: 80 kg

DRUGS (15)
  1. ZOMETA [Suspect]
     Indication: BREAST CANCER
     Dosage: 4 mg, every three weeks
     Route: 042
     Dates: start: 20041021, end: 20050518
  2. ZOMETA [Suspect]
     Dosage: 4 mg, UNK
     Route: 042
     Dates: start: 20050923, end: 20051007
  3. ZOMETA [Suspect]
     Dosage: Styrke: 4 mg/100 ml
     Route: 042
     Dates: start: 20041021, end: 20050518
  4. ANTINEOPLASTIC AGENTS [Concomitant]
     Dosage: 1 DF, 12 times
     Route: 065
     Dates: start: 200409, end: 20050519
  5. ANTINEOPLASTIC AGENTS [Concomitant]
     Dosage: UNK
     Route: 065
     Dates: start: 200601
  6. CYCLOPHOSPHAMIDE [Concomitant]
     Dates: start: 20041004, end: 200505
  7. EPIRUBICIN [Concomitant]
  8. 5-FLUOROURACIL [Concomitant]
  9. RADIOTHERAPY [Concomitant]
     Dosage: UNK, 10 times
     Route: 065
     Dates: start: 200501
  10. OXYCONTIN [Concomitant]
     Route: 048
  11. AKARIN [Concomitant]
     Dosage: 20 mg/d
     Route: 048
  12. TOLVON [Concomitant]
     Dosage: 30 mg/d
     Route: 048
  13. FORTAMOL [Concomitant]
     Route: 065
  14. 5-FU + CISPLATIN [Concomitant]
     Route: 065
  15. IFOSFAMIDE [Concomitant]
     Route: 065

REACTIONS (21)
  - Breast cancer [Fatal]
  - Osteonecrosis of jaw [Unknown]
  - Trismus [Recovering/Resolving]
  - Dry mouth [Unknown]
  - Tooth disorder [Unknown]
  - Impaired healing [Unknown]
  - Pain in jaw [Unknown]
  - Bone disorder [Unknown]
  - Infection [Unknown]
  - Pyrexia [Unknown]
  - Primary sequestrum [Unknown]
  - Abscess jaw [Unknown]
  - Jaw disorder [Unknown]
  - Periodontitis [Unknown]
  - Mastication disorder [Recovering/Resolving]
  - Eating disorder [Unknown]
  - Swelling [Unknown]
  - Oral cavity fistula [Unknown]
  - Excessive granulation tissue [Unknown]
  - Wound dehiscence [Unknown]
  - Bone development abnormal [Unknown]
